FAERS Safety Report 16941547 (Version 1)
Quarter: 2019Q4

REPORT INFORMATION
  Report Type: Spontaneous
  Country: US (occurrence: US)
  Receive Date: 20191020
  Receipt Date: 20191020
  Transmission Date: 20200122
  Serious: Yes (Other)
  Sender: FDA-Public Use
  Company Number: None

PATIENT
  Age: 72 Year
  Sex: Male

DRUGS (4)
  1. ELIQUIS [Concomitant]
     Active Substance: APIXABAN
     Dates: start: 20181015, end: 20191020
  2. VALSARTAN. [Suspect]
     Active Substance: VALSARTAN
     Indication: HYPERTENSION
     Route: 048
     Dates: start: 20191012, end: 20191020
  3. SIMVASTATIN 20MG [Concomitant]
     Active Substance: SIMVASTATIN
     Dates: start: 20150222, end: 20191020
  4. ROPINIROLE 2MG [Concomitant]
     Dates: start: 20180710, end: 20191020

REACTIONS (2)
  - Blood pressure systolic increased [None]
  - Treatment failure [None]

NARRATIVE: CASE EVENT DATE: 20191018
